FAERS Safety Report 20983839 (Version 1)
Quarter: 2022Q2

REPORT INFORMATION
  Report Type: Spontaneous
  Country: JP (occurrence: JP)
  Receive Date: 20220621
  Receipt Date: 20220621
  Transmission Date: 20220721
  Serious: Yes (Other)
  Sender: FDA-Public Use
  Company Number: JP-MSNLABS-2022MSNLIT00692

PATIENT

DRUGS (7)
  1. PREGABALIN [Suspect]
     Active Substance: PREGABALIN
     Indication: Cancer pain
     Route: 048
  2. ACETAMINOPHEN [Suspect]
     Active Substance: ACETAMINOPHEN
     Indication: Cancer pain
     Route: 048
  3. LOXOPROFEN [Suspect]
     Active Substance: LOXOPROFEN
     Indication: Cancer pain
     Route: 048
  4. MORPHINE [Suspect]
     Active Substance: MORPHINE
     Indication: Cancer pain
     Route: 042
  5. TAPENTADOL [Suspect]
     Active Substance: TAPENTADOL
     Indication: Cancer pain
     Route: 048
  6. DULOXETINE [Suspect]
     Active Substance: DULOXETINE
     Indication: Cancer pain
     Route: 048
  7. KETAMINE [Suspect]
     Active Substance: KETAMINE
     Indication: Cancer pain
     Route: 042

REACTIONS (1)
  - Drug ineffective [Not Recovered/Not Resolved]
